FAERS Safety Report 25356069 (Version 2)
Quarter: 2025Q2

REPORT INFORMATION
  Report Type: Report from Study
  Country: US (occurrence: US)
  Receive Date: 20250525
  Receipt Date: 20250626
  Transmission Date: 20250717
  Serious: Yes (Hospitalization, Other)
  Sender: STEMLINE THERAPEUTICS
  Company Number: US-STEMLINE THERAPEUTICS, INC-2025-STML-US001804

PATIENT

DRUGS (3)
  1. ORSERDU [Suspect]
     Active Substance: ELACESTRANT
     Indication: Product used for unknown indication
     Dosage: UNK UNK, DAILY
     Route: 065
     Dates: start: 20240227
  2. ORSERDU [Suspect]
     Active Substance: ELACESTRANT
     Dosage: UNK, (MG UNITS) DAILY
     Route: 065
     Dates: start: 20240702, end: 20250405
  3. ORSERDU [Suspect]
     Active Substance: ELACESTRANT
     Dosage: UNK, DAILY
     Route: 065
     Dates: end: 20250609

REACTIONS (2)
  - Pneumonia [Recovering/Resolving]
  - Cardiac failure [Recovering/Resolving]
